FAERS Safety Report 10832392 (Version 1)
Quarter: 2015Q1

REPORT INFORMATION
  Report Type: Report from Study
  Country: US (occurrence: US)
  Receive Date: 20150219
  Receipt Date: 20150219
  Transmission Date: 20150721
  Serious: No
  Sender: FDA-Public Use
  Company Number: US-ABBVIE-14P-163-1198604-00

PATIENT
  Age: 67 Year
  Sex: Male
  Weight: 77.18 kg

DRUGS (8)
  1. SYNTHROID [Concomitant]
     Active Substance: LEVOTHYROXINE SODIUM
     Indication: HYPOTHYROIDISM
     Route: 048
  2. UROXATRAL [Concomitant]
     Active Substance: ALFUZOSIN HYDROCHLORIDE
     Indication: PRODUCT USED FOR UNKNOWN INDICATION
     Route: 048
  3. METHOTREXATE [Suspect]
     Active Substance: METHOTREXATE
     Indication: RHEUMATOID ARTHRITIS
     Route: 042
     Dates: start: 2013, end: 2013
  4. LOSARTAN [Concomitant]
     Active Substance: LOSARTAN
     Indication: HYPERTENSION
     Route: 048
  5. ETODOLAC. [Concomitant]
     Active Substance: ETODOLAC
     Indication: ARTHRITIS
     Route: 048
  6. FOLIC ACID. [Concomitant]
     Active Substance: FOLIC ACID
     Indication: VITAMIN SUPPLEMENTATION
     Route: 048
  7. HUMIRA [Suspect]
     Active Substance: ADALIMUMAB
     Indication: PSORIATIC ARTHROPATHY
  8. HUMIRA [Suspect]
     Active Substance: ADALIMUMAB
     Indication: RHEUMATOID ARTHRITIS
     Route: 058
     Dates: start: 201306, end: 201312

REACTIONS (5)
  - Fatigue [Recovering/Resolving]
  - Lower respiratory tract inflammation [Not Recovered/Not Resolved]
  - Sinus congestion [Recovering/Resolving]
  - Bronchitis [Recovered/Resolved]
  - Pulmonary congestion [Recovering/Resolving]

NARRATIVE: CASE EVENT DATE: 201310
